FAERS Safety Report 10166663 (Version 1)
Quarter: 2014Q2

REPORT INFORMATION
  Report Type: Spontaneous
  Country: FR (occurrence: FR)
  Receive Date: 20140512
  Receipt Date: 20140512
  Transmission Date: 20141212
  Serious: Yes (Life-Threatening)
  Sender: FDA-Public Use
  Company Number: FR-SA-2014SA055938

PATIENT
  Age: 77 Year
  Sex: Male

DRUGS (7)
  1. KARDEGIC [Suspect]
     Indication: ANGIOGRAM
     Route: 048
     Dates: start: 20140217, end: 20140222
  2. PLAVIX [Suspect]
     Indication: ANGIOGRAM
     Route: 048
     Dates: start: 20140217, end: 20140222
  3. PIPERACILLIN/TAZOBACTAM [Suspect]
     Indication: PULMONARY SEPSIS
     Route: 042
     Dates: start: 20140209, end: 20140226
  4. PIPERACILLIN/TAZOBACTAM [Suspect]
     Indication: UROSEPSIS
     Route: 042
     Dates: start: 20140209, end: 20140226
  5. CIPROFLOXACIN [Suspect]
     Indication: PULMONARY SEPSIS
     Route: 042
     Dates: start: 20140209, end: 20140226
  6. CIPROFLOXACIN [Suspect]
     Indication: UROSEPSIS
     Route: 042
     Dates: start: 20140209, end: 20140226
  7. PREVISCAN [Suspect]
     Indication: PRODUCT USED FOR UNKNOWN INDICATION
     Route: 048
     Dates: start: 20140212, end: 20140222

REACTIONS (4)
  - Shock haemorrhagic [Recovered/Resolved]
  - International normalised ratio increased [Recovered/Resolved]
  - Haematuria [Recovered/Resolved]
  - Anaemia [Recovered/Resolved]
